FAERS Safety Report 20189664 (Version 2)
Quarter: 2021Q4

REPORT INFORMATION
  Report Type: Spontaneous
  Country: US (occurrence: US)
  Receive Date: 20211215
  Receipt Date: 20211224
  Transmission Date: 20220303
  Serious: Yes (Hospitalization)
  Sender: FDA-Public Use
  Company Number: US-TEVA-2021-US-1986921

PATIENT
  Age: 55 Year
  Sex: Female

DRUGS (3)
  1. PREDNISONE [Suspect]
     Active Substance: PREDNISONE
     Indication: Immune-mediated enterocolitis
     Route: 065
  2. DURVALUMAB [Suspect]
     Active Substance: DURVALUMAB
     Indication: Ovarian cancer metastatic
     Route: 050
  3. VEDOLIZUMAB [Concomitant]
     Active Substance: VEDOLIZUMAB
     Indication: Immune-mediated enterocolitis
     Route: 065

REACTIONS (3)
  - Insomnia [Unknown]
  - Immune-mediated cholangitis [Recovering/Resolving]
  - Immune-mediated hepatitis [Recovering/Resolving]
